FAERS Safety Report 18403100 (Version 1)
Quarter: 2020Q4

REPORT INFORMATION
  Report Type: Other
  Country: CA (occurrence: CA)
  Receive Date: 20201019
  Receipt Date: 20201019
  Transmission Date: 20210114
  Serious: Yes (Other)
  Sender: FDA-Public Use
  Company Number: CA-CELLTRION INC.-2020CA028796

PATIENT

DRUGS (11)
  1. NAPROXEN. [Concomitant]
     Active Substance: NAPROXEN
  2. RITUXIMAB (UNKNOWN) [Suspect]
     Active Substance: RITUXIMAB
     Indication: RHEUMATOID ARTHRITIS
     Route: 065
  3. OMEGA 3 [DOCOSAHEXAENOIC ACID;EICOSAPENTAENOIC ACID] [Concomitant]
     Active Substance: DOCONEXENT\ICOSAPENT
  4. RESTASIS [Concomitant]
     Active Substance: CYCLOSPORINE
  5. VITAMIN C [Concomitant]
     Active Substance: ASCORBIC ACID
  6. HYDROXYCHLOROQUINE SULFATE. [Concomitant]
     Active Substance: HYDROXYCHLOROQUINE SULFATE
  7. TURMERIC [CURCUMA LONGA] [Concomitant]
     Active Substance: HERBALS\TURMERIC
  8. CANNABIS SATIVA [Concomitant]
     Active Substance: CANNABIS SATIVA FLOWERING TOP
     Dosage: UNK
  9. HYALURONATE SODIUM [Concomitant]
     Active Substance: HYALURONATE SODIUM
  10. SULFASALAZINE. [Concomitant]
     Active Substance: SULFASALAZINE
  11. ERGOCALCIFEROL. [Concomitant]
     Active Substance: ERGOCALCIFEROL

REACTIONS (5)
  - Blood creatinine decreased [Unknown]
  - Mean cell volume increased [Unknown]
  - Musculoskeletal stiffness [Unknown]
  - Blood cholesterol increased [Unknown]
  - Blood immunoglobulin M decreased [Unknown]
